FAERS Safety Report 6491555-4 (Version None)
Quarter: 2009Q4

REPORT INFORMATION
  Report Type: 
  Country: None (occurrence: None)
  Receive Date: 20091125
  Receipt Date: 20090306
  Transmission Date: 20100525
  Serious: Yes (Other)
  Sender: FDA-Public Use
  Company Number: 2009BH003794

PATIENT
  Age: 27 Year
  Sex: Female
  Weight: 68.9467 kg

DRUGS (4)
  1. DIANEAL [Suspect]
     Indication: PERITONEAL DIALYSIS
     Dosage: 10 L ; EVERY DAY ; IP
     Route: 033
  2. DIANEAL [Suspect]
     Indication: PERITONEAL DIALYSIS
     Dosage: 2 L ; EVERY DAY ; IP
     Route: 033
  3. EPOGEN [Concomitant]
  4. PHOSLO [Concomitant]

REACTIONS (5)
  - DEVICE RELATED INFECTION [None]
  - DIARRHOEA [None]
  - MUSCLE SPASMS [None]
  - PERITONEAL DIALYSIS COMPLICATION [None]
  - PERITONITIS BACTERIAL [None]
